FAERS Safety Report 5661123-2 (Version None)
Quarter: 2008Q1

REPORT INFORMATION
  Report Type: 
  Country: None (occurrence: None)
  Receive Date: 20080115
  Receipt Date: 20071025
  Transmission Date: 20080703
  Serious: Yes (Other)
  Sender: FDA-Public Use
  Company Number: PHEH2007US14127

PATIENT
  Age: 69 Year
  Sex: Female
  Weight: 72.6 kg

DRUGS (3)
  1. EXELON [Suspect]
     Indication: DEMENTIA ALZHEIMER'S TYPE
     Dosage: 4.6 MG, QD, TRANSDERMAL
     Route: 062
     Dates: start: 20071014, end: 20071017
  2. NAMENDA [Concomitant]
  3. PLAVIX [Concomitant]

REACTIONS (2)
  - DISORIENTATION [None]
  - INCOHERENT [None]
